FAERS Safety Report 18376173 (Version 1)
Quarter: 2020Q4

REPORT INFORMATION
  Report Type: Spontaneous
  Country: US (occurrence: US)
  Receive Date: 20201013
  Receipt Date: 20201013
  Transmission Date: 20210114
  Serious: No
  Sender: FDA-Public Use
  Company Number: US-TEVA-2020-US-1836882

PATIENT
  Age: 65 Year
  Sex: Female

DRUGS (2)
  1. BUPROPION HYDROCHLORIDE XL TEVA [Suspect]
     Active Substance: BUPROPION HYDROCHLORIDE
     Dosage: FORM OF ADMIN: EXTENDED RELEASE TABLET
     Route: 065
     Dates: start: 202009
  2. BUPROPION HYDROCHLORIDE XL TEVA [Suspect]
     Active Substance: BUPROPION HYDROCHLORIDE
     Indication: SMOKING CESSATION THERAPY
     Dosage: FORM OF ADMIN: EXTENDED RELEASE TABLET
     Route: 065
     Dates: start: 201905

REACTIONS (1)
  - Drug ineffective [Unknown]

NARRATIVE: CASE EVENT DATE: 202009
